FAERS Safety Report 19078445 (Version 1)
Quarter: 2021Q1

REPORT INFORMATION
  Report Type: Other
  Country: DE (occurrence: DE)
  Receive Date: 20210331
  Receipt Date: 20210331
  Transmission Date: 20210420
  Serious: Yes (Hospitalization)
  Sender: FDA-Public Use
  Company Number: DE-ROCHE-2348119

PATIENT
  Age: 62 Year
  Sex: Male

DRUGS (15)
  1. TILIDIN [Concomitant]
     Active Substance: NALOXONE HYDROCHLORIDE\TILIDINE HYDROCHLORIDE
  2. BISOPROLOL [Concomitant]
     Active Substance: BISOPROLOL
  3. OCREVUS [Suspect]
     Active Substance: OCRELIZUMAB
     Indication: PRIMARY PROGRESSIVE MULTIPLE SCLEROSIS
     Route: 042
     Dates: start: 20181005, end: 20181005
  4. TAMSULOSIN [Concomitant]
     Active Substance: TAMSULOSIN
  5. OCREVUS [Suspect]
     Active Substance: OCRELIZUMAB
     Route: 042
     Dates: start: 20181023
  6. DULOXALTA [Concomitant]
     Active Substance: DULOXETINE HYDROCHLORIDE
  7. MODAFINIL. [Concomitant]
     Active Substance: MODAFINIL
  8. OCREVUS [Suspect]
     Active Substance: OCRELIZUMAB
     Route: 042
     Dates: start: 20190619
  9. OCREVUS [Suspect]
     Active Substance: OCRELIZUMAB
     Route: 042
     Dates: start: 20201005
  10. METFORMIN [Concomitant]
     Active Substance: METFORMIN HYDROCHLORIDE
  11. PREGABALIN. [Concomitant]
     Active Substance: PREGABALIN
  12. CANDESARTAN. [Concomitant]
     Active Substance: CANDESARTAN
  13. DIGIMERCK [Concomitant]
     Active Substance: DIGITOXIN
  14. METFORMIN [Concomitant]
     Active Substance: METFORMIN HYDROCHLORIDE
  15. ELIQUIS [Concomitant]
     Active Substance: APIXABAN

REACTIONS (7)
  - Ultrasound bladder abnormal [Not Recovered/Not Resolved]
  - Blood test abnormal [Recovered/Resolved]
  - Glycosylated haemoglobin increased [Recovered/Resolved]
  - Abscess limb [Recovering/Resolving]
  - Urinary tract infection [Recovered/Resolved]
  - White blood cell count abnormal [Recovered/Resolved]
  - B-lymphocyte count decreased [Recovered/Resolved]

NARRATIVE: CASE EVENT DATE: 20190320
